FAERS Safety Report 14196633 (Version 2)
Quarter: 2017Q4

REPORT INFORMATION
  Report Type: Spontaneous
  Country: JP (occurrence: JP)
  Receive Date: 20171116
  Receipt Date: 20171117
  Transmission Date: 20180321
  Serious: Yes (Hospitalization)
  Sender: FDA-Public Use
  Company Number: JP-VALIDUS PHARMACEUTICALS LLC-JP-2017VAL001540

PATIENT
  Age: 54 Year
  Sex: Female

DRUGS (2)
  1. ROCALTROL [Suspect]
     Active Substance: CALCITRIOL
     Indication: OSTEOPOROSIS
     Dosage: UNK, DOSAGE IS UNCERTAIN
     Route: 048
  2. MAGNESIUM OXIDE. [Concomitant]
     Active Substance: MAGNESIUM OXIDE
     Indication: PRODUCT USED FOR UNKNOWN INDICATION
     Dosage: UNK, DOSAGE IS UNCERTAIN
     Route: 048

REACTIONS (2)
  - Milk-alkali syndrome [Unknown]
  - Acute kidney injury [Unknown]
